FAERS Safety Report 23713525 (Version 2)
Quarter: 2024Q3

REPORT INFORMATION
  Report Type: Report from Study
  Country: CA (occurrence: CA)
  Receive Date: 20240405
  Receipt Date: 20240909
  Transmission Date: 20241017
  Serious: Yes (Other)
  Sender: IPSEN
  Company Number: CA-IPSEN Group, Research and Development-2024-01066

PATIENT
  Age: 91 Year
  Sex: Female

DRUGS (12)
  1. LANREOTIDE ACETATE [Suspect]
     Active Substance: LANREOTIDE ACETATE
     Indication: Gastroenteropancreatic neuroendocrine tumour disease
     Dosage: 120 MG Q 4 WEEKS
     Route: 058
     Dates: start: 20240117
  2. LANREOTIDE ACETATE [Suspect]
     Active Substance: LANREOTIDE ACETATE
     Dosage: 60 MG Q 4 WEEKS
     Route: 058
  3. HYDREA [Concomitant]
     Active Substance: HYDROXYUREA
     Dosage: 500MG OD
  4. SENOKOT [Concomitant]
     Active Substance: SENNOSIDES
     Dosage: 2 TABS OD
  5. QUETIAPINE [Concomitant]
     Active Substance: QUETIAPINE
     Dosage: 25MG OD
  6. MIRTAZAPINE [Concomitant]
     Active Substance: MIRTAZAPINE
     Dosage: 30 MG OD
  7. TYLENOL ARTHRITIS PAIN [Concomitant]
     Active Substance: ACETAMINOPHEN
     Dosage: 2 TABS BID
  8. VITAMIN B2 [Concomitant]
     Active Substance: RIBOFLAVIN
     Dosage: OD
  9. ASPIRIN [Concomitant]
     Active Substance: ASPIRIN
     Dosage: 81MG OD
  10. AMLODIPINE [Concomitant]
     Active Substance: AMLODIPINE BESYLATE
     Dosage: 5MG OD
  11. ROSUVASTATIN [Concomitant]
     Active Substance: ROSUVASTATIN\ROSUVASTATIN CALCIUM
     Dosage: 10MG OD
  12. DOMPERIDONE [Concomitant]
     Active Substance: DOMPERIDONE
     Dosage: 10MG OD

REACTIONS (6)
  - Bradycardia [Recovering/Resolving]
  - Skin candida [Not Recovered/Not Resolved]
  - Feeling hot [Recovering/Resolving]
  - Pain [Recovering/Resolving]
  - Poor quality sleep [Recovering/Resolving]
  - Off label use [Unknown]

NARRATIVE: CASE EVENT DATE: 20240101
